FAERS Safety Report 6435824-2 (Version None)
Quarter: 2009Q4

REPORT INFORMATION
  Report Type: 
  Country: None (occurrence: None)
  Receive Date: 20091111
  Receipt Date: 20091102
  Transmission Date: 20100525
  Serious: Yes (Hospitalization)
  Sender: FDA-Public Use
  Company Number: NZ-ASTRAZENECA-2009SE23703

PATIENT
  Age: 78 Year
  Sex: Male

DRUGS (2)
  1. OMEPRAZOLE [Suspect]
     Route: 048
     Dates: start: 20040704, end: 20040706
  2. ACETYLSALICYLIC ACID [Concomitant]
     Route: 048
     Dates: start: 20040704

REACTIONS (3)
  - CHEST PAIN [None]
  - HEPATOCELLULAR INJURY [None]
  - HYPERBILIRUBINAEMIA [None]
